FAERS Safety Report 16652325 (Version 2)
Quarter: 2019Q3

REPORT INFORMATION
  Report Type: Report from Study
  Country: US (occurrence: US)
  Receive Date: 20190731
  Receipt Date: 20190905
  Transmission Date: 20191004
  Serious: Yes (Hospitalization, Other)
  Sender: FDA-Public Use
  Company Number: US-MALLINCKRODT-T201802276

PATIENT
  Age: 57 Year
  Sex: Female

DRUGS (7)
  1. REPOSITORY CORTICOTROPIN INJECTION [Suspect]
     Active Substance: CORTICOTROPIN
     Dosage: 40 UNITS / 0.5 ML 2 TIMES PER WEEK MONDAY AND THURSDAY
     Route: 058
     Dates: start: 2018, end: 2018
  2. REPOSITORY CORTICOTROPIN INJECTION [Suspect]
     Active Substance: CORTICOTROPIN
     Dosage: 40 UNITS / 0.5 ML, 2 TIMES PER WEEK MONDAY AND THURSDAY
     Route: 058
  3. REPOSITORY CORTICOTROPIN INJECTION [Suspect]
     Active Substance: CORTICOTROPIN
     Indication: PULMONARY SARCOIDOSIS
     Dosage: 40 UNITS/0.5 ML 2 TIMES PER WEEK MONDAY AND THURSDAY
     Route: 058
     Dates: start: 20180514, end: 2018
  4. REPOSITORY CORTICOTROPIN INJECTION [Suspect]
     Active Substance: CORTICOTROPIN
     Dosage: 40 UNITS / 0.5 ML 2 TIMES PER WEEK MONDAY AND THURSDAY
     Route: 058
     Dates: start: 2018
  5. REPOSITORY CORTICOTROPIN INJECTION [Suspect]
     Active Substance: CORTICOTROPIN
     Dosage: 40 UNITS / 0.5 ML, 2 TIMES PER WEEK MONDAY AND THURSDAY
     Route: 058
  6. PREDNISONE. [Suspect]
     Active Substance: PREDNISONE
     Indication: PRODUCT USED FOR UNKNOWN INDICATION
     Dosage: UNK
     Route: 065
  7. REPOSITORY CORTICOTROPIN INJECTION [Suspect]
     Active Substance: CORTICOTROPIN
     Dosage: 40 UNITS / 0.5 ML 2 TIMES PER WEEK MONDAY AND THURSDAY
     Route: 058

REACTIONS (29)
  - Visual impairment [Unknown]
  - Concussion [Unknown]
  - Malaise [Not Recovered/Not Resolved]
  - Loss of consciousness [Unknown]
  - White blood cell count increased [Unknown]
  - Hypersomnia [Unknown]
  - Road traffic accident [Unknown]
  - Headache [Not Recovered/Not Resolved]
  - Weight decreased [Unknown]
  - Lower respiratory tract infection [Unknown]
  - Cough [Not Recovered/Not Resolved]
  - Dysphagia [Unknown]
  - Fluid retention [Unknown]
  - Chest pain [Unknown]
  - Pulmonary function test decreased [Unknown]
  - Fatigue [Unknown]
  - Lymphadenopathy [Unknown]
  - Diabetes mellitus [Unknown]
  - Weight increased [Not Recovered/Not Resolved]
  - Back pain [Unknown]
  - Post-traumatic neck syndrome [Unknown]
  - Ageusia [Unknown]
  - Hyperhidrosis [Unknown]
  - Hepatomegaly [Unknown]
  - Pain [Unknown]
  - Hypoaesthesia oral [Unknown]
  - Hypoaesthesia [Unknown]
  - Arteriosclerosis [Unknown]
  - Increased appetite [Unknown]

NARRATIVE: CASE EVENT DATE: 2018
